FAERS Safety Report 19048252 (Version 2)
Quarter: 2021Q2

REPORT INFORMATION
  Report Type: Other
  Country: IT (occurrence: IT)
  Receive Date: 20210324
  Receipt Date: 20210405
  Transmission Date: 20210717
  Serious: Yes (Hospitalization)
  Sender: FDA-Public Use
  Company Number: IT-CELLTRION INC.-2021IT003663

PATIENT

DRUGS (5)
  1. CYCLOPHOSPHAMIDE. [Suspect]
     Active Substance: CYCLOPHOSPHAMIDE
     Indication: DIFFUSE LARGE B-CELL LYMPHOMA
     Dosage: 750 MG/M2, EVERY 1 CYCLE
     Dates: start: 20200917
  2. PREDNISONE. [Suspect]
     Active Substance: PREDNISONE
     Indication: DIFFUSE LARGE B-CELL LYMPHOMA
     Dosage: 500 MG, EVERY 1 CYCLE
     Dates: start: 20200917
  3. RITUXIMAB (UNKNOWN) [Suspect]
     Active Substance: RITUXIMAB
     Indication: DIFFUSE LARGE B-CELL LYMPHOMA
     Dosage: 375 MG/M2, EVERY 1 CYCLE
     Route: 042
     Dates: start: 20200924
  4. MYOCET 50 MG POWDER, DISPERSION AND SOLVENT FOR CONCENTRATE FOR DISPER [Concomitant]
     Active Substance: DOXORUBICIN
     Indication: DIFFUSE LARGE B-CELL LYMPHOMA
     Dosage: 50 MG/M2
     Dates: start: 20200917
  5. VINCRISTINE [Concomitant]
     Active Substance: VINCRISTINE
     Indication: DIFFUSE LARGE B-CELL LYMPHOMA
     Dosage: 2 MG
     Dates: start: 20200917

REACTIONS (3)
  - Thrombocytopenia [Recovered/Resolved]
  - Mucosal inflammation [Recovered/Resolved]
  - Febrile neutropenia [Recovered/Resolved]

NARRATIVE: CASE EVENT DATE: 20201001
